FAERS Safety Report 9492715 (Version 1)
Quarter: 2013Q3

REPORT INFORMATION
  Report Type: Spontaneous
  Country: US (occurrence: US)
  Receive Date: 20130830
  Receipt Date: 20130830
  Transmission Date: 20140515
  Serious: No
  Sender: FDA-Public Use
  Company Number: US-TEVA-428778USA

PATIENT
  Sex: Female
  Weight: 56.75 kg

DRUGS (2)
  1. NUVIGIL [Suspect]
     Indication: CIRCADIAN RHYTHM SLEEP DISORDER
     Route: 048
     Dates: start: 2012
  2. SYNTHROID [Concomitant]
     Route: 047

REACTIONS (4)
  - Nasal dryness [Unknown]
  - Vulvovaginal dryness [Unknown]
  - Dry eye [Unknown]
  - Dry mouth [Not Recovered/Not Resolved]
